FAERS Safety Report 10566103 (Version 2)
Quarter: 2014Q4

REPORT INFORMATION
  Report Type: Report from Study
  Country: IE (occurrence: IE)
  Receive Date: 20141105
  Receipt Date: 20141117
  Transmission Date: 20150529
  Serious: Yes (Other)
  Sender: FDA-Public Use
  Company Number: IE-ABBVIE-14K-229-1302633-00

PATIENT
  Age: 42 Year
  Sex: Male

DRUGS (2)
  1. HUMIRA [Suspect]
     Active Substance: ADALIMUMAB
     Indication: COLITIS
     Route: 058
     Dates: start: 20141001
  2. HUMIRA [Suspect]
     Active Substance: ADALIMUMAB
     Indication: PROCTITIS

REACTIONS (2)
  - Depressed mood [Recovering/Resolving]
  - Learning disability [Unknown]

NARRATIVE: CASE EVENT DATE: 20141028
